FAERS Safety Report 5944307-5 (Version None)
Quarter: 2008Q4

REPORT INFORMATION
  Report Type: 
  Country: None (occurrence: None)
  Receive Date: 20081105
  Receipt Date: 20081022
  Transmission Date: 20090506
  Serious: Yes (Death, Hospitalization, Other)
  Sender: FDA-Public Use
  Company Number: 2008S1014334

PATIENT
  Age: 76 Year
  Sex: Male
  Weight: 180 kg

DRUGS (7)
  1. METHOTREXATE [Suspect]
     Indication: POLYMYALGIA RHEUMATICA
     Dosage: 2.5 MG; 3 TIMES A DAY, ORAL
     Route: 048
     Dates: start: 20080721, end: 20080726
  2. METHOTREXATE [Suspect]
     Indication: RHEUMATOID ARTHRITIS
     Dosage: 2.5 MG; 3 TIMES A DAY, ORAL
     Route: 048
     Dates: start: 20080721, end: 20080726
  3. METOPROLOL TARTRATE [Concomitant]
  4. METFORMIN HCL [Concomitant]
  5. CORTICOSTEROID NOS [Concomitant]
  6. DIOVAN [Concomitant]
  7. COUMADIN [Concomitant]

REACTIONS (15)
  - ABSCESS INTESTINAL [None]
  - ACCIDENTAL OVERDOSE [None]
  - BLISTER [None]
  - FULL BLOOD COUNT DECREASED [None]
  - FUNGAL INFECTION [None]
  - GENERALISED ERYTHEMA [None]
  - HEADACHE [None]
  - INAPPROPRIATE SCHEDULE OF DRUG ADMINISTRATION [None]
  - OROPHARYNGEAL BLISTERING [None]
  - PHOTOPHOBIA [None]
  - POST PROCEDURAL DIARRHOEA [None]
  - PRURITUS GENERALISED [None]
  - RASH PRURITIC [None]
  - SKIN EXFOLIATION [None]
  - STOMATITIS [None]
